FAERS Safety Report 6681638-8 (Version None)
Quarter: 2010Q2

REPORT INFORMATION
  Report Type: 
  Country: None (occurrence: None)
  Receive Date: 20100414
  Receipt Date: 20100406
  Transmission Date: 20101027
  Serious: Yes (Hospitalization)
  Sender: FDA-Public Use
  Company Number: GXKR2010FR03928

PATIENT
  Age: 10 Year
  Sex: Male

DRUGS (8)
  1. CLARITHROMYCIN [Suspect]
     Indication: RESPIRATORY TRACT INFECTION
     Dosage: 250 MG, BID
  2. OXCARBAZEPINE [Interacting]
     Dosage: 540 MG IN MORNING AND 510 MG IN THE NIGHT
  3. OXCARBAZEPINE [Interacting]
     Dosage: 420 MG (12 HRS AFTER ADMISSION, DOSE WAS REDUCED)
  4. OXCARBAZEPINE [Interacting]
     Dosage: 540 MG (AFTER 12 HRS DOSE WAS INCREASED BACK)
  5. OXCARBAZEPINE [Interacting]
     Dosage: DOSAGE HALVED FOR 24 HRS
  6. LAMOTRIGINE [Concomitant]
     Dosage: 100 MG, BID
  7. VALPROATE SODIUM [Concomitant]
     Dosage: 100 MG IN THE MORNING/300 MG
  8. TOPIRAMATE [Concomitant]
     Dosage: 100 MG, BID

REACTIONS (10)
  - ATAXIA [None]
  - BALANCE DISORDER [None]
  - DIZZINESS [None]
  - DRUG INTERACTION [None]
  - DRUG TOXICITY [None]
  - HYPERKINESIA [None]
  - NYSTAGMUS [None]
  - SOMNOLENCE [None]
  - UNRESPONSIVE TO STIMULI [None]
  - VOMITING [None]
